FAERS Safety Report 7805082-2 (Version None)
Quarter: 2011Q4

REPORT INFORMATION
  Report Type: 
  Country: None (occurrence: None)
  Receive Date: 20111010
  Receipt Date: 20110928
  Transmission Date: 20120403
  Serious: Yes (Other)
  Sender: FDA-Public Use
  Company Number: JP-ASTRAZENECA-2011SE54620

PATIENT
  Age: 84 Year
  Sex: Female

DRUGS (10)
  1. GRAMALIL [Suspect]
     Indication: DEPRESSION
     Route: 048
     Dates: start: 20081212
  2. TOFRANIL [Concomitant]
     Indication: DEPRESSION
  3. ARICEPT [Concomitant]
     Indication: DEMENTIA
  4. SEROQUEL [Suspect]
     Indication: INSOMNIA
     Route: 048
     Dates: start: 20081219, end: 20110907
  5. DEPAS [Concomitant]
     Indication: DEPRESSION
  6. DEPAS [Concomitant]
     Indication: INSOMNIA
  7. JUVELA N [Concomitant]
     Indication: CIRCULATORY COLLAPSE
  8. CANDESARTAN CILEXETIL [Concomitant]
     Dates: end: 20090811
  9. BAYMYCARD [Concomitant]
     Dates: start: 20090812
  10. SEROQUEL [Suspect]
     Indication: DELIRIUM
     Route: 048
     Dates: start: 20081219, end: 20110907

REACTIONS (4)
  - CYANOSIS [None]
  - SALIVARY HYPERSECRETION [None]
  - HYPOTENSION [None]
  - LOSS OF CONSCIOUSNESS [None]
